FAERS Safety Report 18504319 (Version 1)
Quarter: 2020Q4

REPORT INFORMATION
  Report Type: Spontaneous
  Country: GB (occurrence: GB)
  Receive Date: 20201114
  Receipt Date: 20201114
  Transmission Date: 20210114
  Serious: No
  Sender: FDA-Public Use
  Company Number: GB-ALKEM LABORATORIES LIMITED-GB-ALKEM-2020-05695

PATIENT
  Sex: Male

DRUGS (3)
  1. MADOPAR [Suspect]
     Active Substance: BENSERAZIDE HYDROCHLORIDE\LEVODOPA
     Indication: PARKINSON^S DISEASE
     Dosage: UNK
     Route: 065
  2. APO-GO PFS (5MG/ML) [Suspect]
     Active Substance: APOMORPHINE HYDROCHLORIDE
     Indication: PARKINSON^S DISEASE
     Dosage: 50 MILLIGRAM
     Route: 058
     Dates: start: 2020
  3. PREGABALIN. [Suspect]
     Active Substance: PREGABALIN
     Indication: PARKINSON^S DISEASE
     Dosage: UNK
     Route: 065

REACTIONS (1)
  - Nightmare [Recovered/Resolved]

NARRATIVE: CASE EVENT DATE: 20200818
